FAERS Safety Report 13915282 (Version 2)
Quarter: 2020Q1

REPORT INFORMATION
  Report Type: Spontaneous
  Country: DE (occurrence: DE)
  Receive Date: 20170829
  Receipt Date: 20200327
  Transmission Date: 20200409
  Serious: Yes (Congenital Anomaly, Other)
  Sender: FDA-Public Use
  Company Number: DE-AUROBINDO-AUR-APL-2017-39406

PATIENT
  Age: 1 Year
  Sex: Male
  Weight: 3.97 kg

DRUGS (13)
  1. LEVETIRACETAM 500MG [Suspect]
     Active Substance: LEVETIRACETAM
     Indication: EPILEPSY
     Dosage: 500 MILLIGRAM, TWO TIMES A DAY
     Route: 064
     Dates: start: 20160414, end: 20170122
  2. EFEROX [Concomitant]
     Active Substance: LEVOTHYROXINE SODIUM
     Dosage: UNK
  3. BALDRIAN-DISPERT [Concomitant]
     Active Substance: VALERIAN
     Indication: SLEEP DISORDER
     Dosage: 45 MILLIGRAM, ONCE A DAY
     Route: 064
  4. VITAMIN D NOS [Concomitant]
     Active Substance: VITAMIN D NOS
     Indication: VITAMIN D DEFICIENCY
     Dosage: 1000 INTERNATIONAL UNIT, ONCE A DAY
     Route: 064
  5. OXYTOCIN. [Concomitant]
     Active Substance: OXYTOCIN
     Indication: LABOUR INDUCTION
     Dosage: UNK
     Route: 064
     Dates: start: 20170122, end: 20170122
  6. SERTRALINE [Suspect]
     Active Substance: SERTRALINE HYDROCHLORIDE
     Indication: DEPRESSION
     Dosage: 50 MILLIGRAM, ONCE A DAY
     Route: 064
     Dates: start: 20160414, end: 20170122
  7. INIMUR MYKO [Concomitant]
     Indication: VULVOVAGINAL MYCOTIC INFECTION
     Dosage: UNK
     Route: 064
  8. EFEROX [Concomitant]
     Active Substance: LEVOTHYROXINE SODIUM
     Indication: HYPOTHYROIDISM
     Dosage: 112 MICROGRAM, ONCE A DAY
     Route: 064
     Dates: start: 20160414, end: 20170122
  9. NYSTATIN. [Concomitant]
     Active Substance: NYSTATIN
     Indication: VULVOVAGINAL MYCOTIC INFECTION
     Dosage: UNK
     Route: 064
  10. FOLIC ACID. [Concomitant]
     Active Substance: FOLIC ACID
     Indication: PROPHYLAXIS OF NEURAL TUBE DEFECT
     Dosage: 0.8 MILLIGRAM, ONCE A DAY
     Route: 064
     Dates: start: 20160414, end: 20160706
  11. FEMIBION [Concomitant]
     Indication: PROPHYLAXIS OF NEURAL TUBE DEFECT
     Dosage: 0.8 MILLIGRAM, ONCE A DAY
     Route: 064
     Dates: start: 20160414, end: 20160706
  12. WICK INHALIERSTIFT N [Concomitant]
     Indication: NASOPHARYNGITIS
     Dosage: UNK
     Route: 064
     Dates: start: 20160609, end: 20160609
  13. BEPANTHEN [Concomitant]
     Indication: NASAL DISCOMFORT
     Dosage: UNK
     Route: 064

REACTIONS (2)
  - Foetal exposure during pregnancy [Unknown]
  - Cerebral haemorrhage neonatal [Unknown]

NARRATIVE: CASE EVENT DATE: 201604
